FAERS Safety Report 24341829 (Version 1)
Quarter: 2024Q3

REPORT INFORMATION
  Report Type: Spontaneous
  Country: US (occurrence: US)
  Receive Date: 20240920
  Receipt Date: 20240920
  Transmission Date: 20241017
  Serious: Yes (Hospitalization, Other)
  Sender: NOVO NORDISK
  Company Number: US-NOVOPROD-1282970

PATIENT
  Age: 81 Year
  Sex: Male

DRUGS (2)
  1. TRESIBA [Suspect]
     Active Substance: INSULIN DEGLUDEC
     Indication: Type 2 diabetes mellitus
     Dosage: 10 OR 12 UNITS IN THE MORNING AND IN THE EVENING
     Route: 058
  2. NOVOLOG [Suspect]
     Active Substance: INSULIN ASPART
     Indication: Type 2 diabetes mellitus
     Dosage: SLIDING SCALE
     Route: 058

REACTIONS (10)
  - Neoplasm malignant [Not Recovered/Not Resolved]
  - Nephrectomy [Recovered/Resolved]
  - Prostatectomy [Recovered/Resolved]
  - Urethrectomy [Recovered/Resolved]
  - Urinary cystectomy [Recovered/Resolved]
  - Stoma creation [Not Recovered/Not Resolved]
  - Kidney infection [Not Recovered/Not Resolved]
  - Hyperglycaemia [Not Recovered/Not Resolved]
  - Blood glucose decreased [Unknown]
  - Product storage error [Unknown]

NARRATIVE: CASE EVENT DATE: 20230101
